FAERS Safety Report 4348483-X (Version None)
Quarter: 2004Q2

REPORT INFORMATION
  Report Type: 
  Country: None (occurrence: None)
  Receive Date: 20040427
  Receipt Date: 20040223
  Transmission Date: 20050107
  Serious: No
  Sender: FDA-Public Use
  Company Number: US-GLAXOSMITHKLINE-A0499413A

PATIENT
  Age: 30 Year
  Sex: Female

DRUGS (3)
  1. VENTOLIN [Suspect]
     Indication: BRONCHITIS
     Route: 055
     Dates: start: 20040221
  2. PREDNISONE [Concomitant]
  3. AMOXIL [Concomitant]

REACTIONS (1)
  - FEELING JITTERY [None]
